FAERS Safety Report 7589973-6 (Version None)
Quarter: 2011Q3

REPORT INFORMATION
  Report Type: 
  Country: None (occurrence: None)
  Receive Date: 20110705
  Receipt Date: 20110610
  Transmission Date: 20111222
  Serious: Yes (Hospitalization)
  Sender: FDA-Public Use
  Company Number: A0880795A

PATIENT
  Age: 60 Year
  Sex: Male
  Weight: 117.7 kg

DRUGS (10)
  1. NORVASC [Concomitant]
     Dates: end: 20010327
  2. INSULIN [Concomitant]
  3. GEMFIBROZIL [Concomitant]
  4. AVANDIA [Suspect]
     Indication: DIABETES MELLITUS
     Dosage: 4MG PER DAY
     Route: 048
     Dates: start: 20000101
  5. MICRONASE [Concomitant]
  6. COZAAR [Concomitant]
  7. PROZAC [Concomitant]
  8. METFORMIN HCL [Concomitant]
  9. LIPITOR [Concomitant]
  10. NEURONTIN [Concomitant]

REACTIONS (6)
  - CORONARY ARTERY BYPASS [None]
  - DIALYSIS [None]
  - IMPLANTABLE DEFIBRILLATOR INSERTION [None]
  - RENAL TRANSPLANT [None]
  - GAIT DISTURBANCE [None]
  - CARDIAC FAILURE CONGESTIVE [None]
